FAERS Safety Report 6872254-3 (Version None)
Quarter: 2010Q3

REPORT INFORMATION
  Report Type: 
  Country: None (occurrence: None)
  Receive Date: 20100723
  Receipt Date: 20100716
  Transmission Date: 20110219
  Serious: Yes (Death, Hospitalization)
  Sender: FDA-Public Use
  Company Number: PHHO2010TW05937

PATIENT
  Sex: Male
  Weight: 43 kg

DRUGS (2)
  1. RAD001C [Suspect]
     Indication: PANCREATIC NEUROENDOCRINE TUMOUR
     Dosage: 10 MG
     Route: 048
     Dates: start: 20091202, end: 20100105
  2. PLACEBO COMP-PLA+ [Suspect]
     Indication: PANCREATIC NEUROENDOCRINE TUMOUR
     Dosage: PLACEBO
     Route: 048
     Dates: start: 20090429

REACTIONS (12)
  - COUGH [None]
  - DYSPNOEA [None]
  - ESCHERICHIA BACTERAEMIA [None]
  - LUNG INFILTRATION [None]
  - LYMPHANGIOSIS CARCINOMATOSA [None]
  - MALAISE [None]
  - METASTASES TO BONE [None]
  - MUSCULAR WEAKNESS [None]
  - OEDEMA PERIPHERAL [None]
  - PLEURAL EFFUSION [None]
  - PNEUMONIA [None]
  - RESPIRATORY FAILURE [None]
